FAERS Safety Report 24680489 (Version 1)
Quarter: 2024Q4

REPORT INFORMATION
  Report Type: Report from Study
  Country: US (occurrence: US)
  Receive Date: 20241129
  Receipt Date: 20241129
  Transmission Date: 20250115
  Serious: Yes (Other)
  Sender: ALEXION PHARMACEUTICALS
  Company Number: US-AstraZeneca-CH-00752124A

PATIENT
  Age: 69 Year
  Weight: 149.66 kg

DRUGS (4)
  1. TEZEPELUMAB [Suspect]
     Active Substance: TEZEPELUMAB
     Indication: Asthma
     Dosage: 210 MILLIGRAM PER MILLILITRE, Q4W
  2. TEZEPELUMAB [Suspect]
     Active Substance: TEZEPELUMAB
     Dosage: 210 MILLIGRAM PER MILLILITRE, Q4W
  3. TEZEPELUMAB [Suspect]
     Active Substance: TEZEPELUMAB
     Dosage: 210 MILLIGRAM PER MILLILITRE, Q4W
  4. TEZEPELUMAB [Suspect]
     Active Substance: TEZEPELUMAB
     Dosage: 210 MILLIGRAM PER MILLILITRE, Q4W

REACTIONS (7)
  - Dyspnoea [Recovering/Resolving]
  - Productive cough [Recovering/Resolving]
  - Decreased appetite [Unknown]
  - Bell^s palsy [Unknown]
  - Urine odour abnormal [Unknown]
  - Obesity [Unknown]
  - Cough [Unknown]
